FAERS Safety Report 4887236-0 (Version None)
Quarter: 2006Q1

REPORT INFORMATION
  Report Type: 
  Country: None (occurrence: None)
  Receive Date: 20060120
  Receipt Date: 20060112
  Transmission Date: 20060701
  Serious: Yes (Other)
  Sender: FDA-Public Use
  Company Number: CA-SANOFI-SYNTHELABO-A01200600338

PATIENT
  Age: 74 Year
  Sex: Male

DRUGS (2)
  1. ELIGARD [Suspect]
     Indication: PROSTATE CANCER
     Route: 058
     Dates: start: 20051012, end: 20051012
  2. PANTOPRAZOLE SODIUM [Concomitant]
     Dosage: UNK
     Route: 048

REACTIONS (1)
  - INJECTION SITE NECROSIS [None]
